FAERS Safety Report 5944344-0 (Version None)
Quarter: 2008Q4

REPORT INFORMATION
  Report Type: 
  Country: None (occurrence: None)
  Receive Date: 20081105
  Receipt Date: 20081028
  Transmission Date: 20090506
  Serious: Yes (Hospitalization)
  Sender: FDA-Public Use
  Company Number: DSA_32597_2008

PATIENT
  Sex: Male
  Weight: 86 kg

DRUGS (4)
  1. ATIVAN [Suspect]
     Indication: SEDATION
     Dosage: DF
  2. BIBW 2992 20 MG [Suspect]
     Indication: MALIGNANT GLIOMA
     Dosage: 20 MG QD ORAL
     Route: 048
     Dates: start: 20080801, end: 20080828
  3. TEMODAR [Concomitant]
  4. HALDOL SOLUTAB [Concomitant]

REACTIONS (4)
  - AGITATION [None]
  - DELIRIUM [None]
  - DYSPHAGIA [None]
  - POST PROCEDURAL COMPLICATION [None]
